FAERS Safety Report 24686335 (Version 2)
Quarter: 2024Q4

REPORT INFORMATION
  Report Type: Spontaneous
  Country: IT (occurrence: IT)
  Receive Date: 20241202
  Receipt Date: 20241218
  Transmission Date: 20250115
  Serious: Yes (Hospitalization, Other)
  Sender: PFIZER
  Company Number: None

PATIENT
  Age: 74 Year
  Sex: Male
  Weight: 80 kg

DRUGS (7)
  1. BEVACIZUMAB [Suspect]
     Active Substance: BEVACIZUMAB
     Indication: Hepatocellular carcinoma
     Dosage: 15 MG/KG, EVERY 3 WEEKS (EVERY 21 DAYS)
     Route: 042
     Dates: start: 20241016, end: 20241016
  2. TECENTRIQ [Suspect]
     Active Substance: ATEZOLIZUMAB
     Indication: Hepatocellular carcinoma
     Dosage: 1200 MG OGNI 21 GIORNI
     Route: 042
     Dates: start: 20241016, end: 20241016
  3. TECENTRIQ [Suspect]
     Active Substance: ATEZOLIZUMAB
     Indication: Hepatocellular carcinoma
  4. DIGOXIN [Concomitant]
     Active Substance: DIGOXIN
     Dosage: 0.125, EVERY 8PM
  5. ENOXAPARIN SODIUM [Concomitant]
     Active Substance: ENOXAPARIN SODIUM
     Dosage: 6000 IU, 8-20 AM
     Route: 058
  6. FUROSEMIDE [Concomitant]
     Active Substance: FUROSEMIDE
     Dosage: 1 CO 8-14 AM
  7. OXYCODONE [Concomitant]
     Active Substance: OXYCODONE
     Dosage: 10 MG, 8-2AM

REACTIONS (12)
  - Cardiac failure [Recovered/Resolved with Sequelae]
  - Atrial fibrillation [Recovered/Resolved with Sequelae]
  - Pulmonary embolism [Recovered/Resolved with Sequelae]
  - Pneumonitis [Recovered/Resolved]
  - Hypertensive crisis [Recovered/Resolved]
  - Pneumonia [Unknown]
  - Pulmonary microemboli [Unknown]
  - Asthenia [Unknown]
  - Decreased appetite [Unknown]
  - Somnolence [Unknown]
  - Insomnia [Unknown]
  - Off label use [Unknown]

NARRATIVE: CASE EVENT DATE: 20241016
